FAERS Safety Report 9983494 (Version 1)
Quarter: 2014Q1

REPORT INFORMATION
  Report Type: Spontaneous
  Country: GB (occurrence: GB)
  Receive Date: 20140307
  Receipt Date: 20140307
  Transmission Date: 20141002
  Serious: Yes (Other)
  Sender: FDA-Public Use
  Company Number: GB-WATSON-2014-03651

PATIENT
  Age: 67 Year
  Sex: Female
  Weight: 57 kg

DRUGS (4)
  1. CITALOPRAM (UNKNOWN) [Suspect]
     Indication: ANXIETY
     Dosage: 10 MG, DAILY
     Route: 048
     Dates: start: 20131206, end: 20131225
  2. AMLODIPINE [Concomitant]
     Indication: PRODUCT USED FOR UNKNOWN INDICATION
     Dosage: UNK
     Route: 065
  3. BENDROFLUMETHIAZIDE [Concomitant]
     Indication: PRODUCT USED FOR UNKNOWN INDICATION
     Dosage: UNK
     Route: 065
  4. IRBESARTAN [Concomitant]
     Indication: PRODUCT USED FOR UNKNOWN INDICATION
     Dosage: UNK
     Route: 065

REACTIONS (3)
  - Bladder pain [Recovered/Resolved]
  - Cystitis noninfective [Unknown]
  - Dysuria [Unknown]
